FAERS Safety Report 22912057 (Version 5)
Quarter: 2023Q4

REPORT INFORMATION
  Report Type: Report from Study
  Country: JP (occurrence: JP)
  Receive Date: 20230906
  Receipt Date: 20231211
  Transmission Date: 20240109
  Serious: Yes (Death, Life-Threatening, Hospitalization, Other)
  Sender: FDA-Public Use
  Company Number: JP-PFIZER INC-2019469918

PATIENT
  Age: 23 Year
  Sex: Male
  Weight: 56 kg

DRUGS (15)
  1. BESPONSA [Suspect]
     Active Substance: INOTUZUMAB OZOGAMICIN
     Indication: Acute lymphocytic leukaemia recurrent
     Dosage: 0.8 MG/M2, 1X/DAY
     Route: 041
     Dates: start: 20191011, end: 20191011
  2. BESPONSA [Suspect]
     Active Substance: INOTUZUMAB OZOGAMICIN
     Dosage: 0.5 MG/M2, 1X/DAY
     Route: 041
     Dates: start: 20191018, end: 20191018
  3. BESPONSA [Suspect]
     Active Substance: INOTUZUMAB OZOGAMICIN
     Dosage: 0.5 MG/M2, WEEKLY
     Route: 041
     Dates: start: 20191025, end: 20191025
  4. SULFAMETHOXAZOLE AND TRIMETHOPRIM [Suspect]
     Active Substance: SULFAMETHOXAZOLE\TRIMETHOPRIM
     Indication: Prophylaxis
     Dosage: 1 TABLET, 1X/DAY
     Route: 048
     Dates: start: 20190404
  5. LANSOPRAZOLE [Suspect]
     Active Substance: LANSOPRAZOLE
     Indication: Prophylaxis against gastrointestinal ulcer
     Dosage: 30 MG, 1X/DAY
     Route: 048
     Dates: start: 20190328
  6. VORICONAZOLE [Concomitant]
     Active Substance: VORICONAZOLE
     Indication: Prophylaxis
     Dosage: UNK
     Route: 048
  7. ACYCLOVIR [Concomitant]
     Active Substance: ACYCLOVIR
     Indication: Prophylaxis
     Dosage: UNK
     Route: 048
  8. CARVEDILOL [Concomitant]
     Active Substance: CARVEDILOL
     Indication: Prophylaxis
     Dosage: UNK
     Route: 048
  9. METHYLCOBALAMIN [Concomitant]
     Active Substance: METHYLCOBALAMIN
     Indication: Prophylaxis
     Dosage: UNK
     Route: 048
  10. FEBUXOSTAT [Concomitant]
     Active Substance: FEBUXOSTAT
     Indication: Prophylaxis
     Dosage: UNK
     Route: 048
  11. MOSAPRIDE [Concomitant]
     Active Substance: MOSAPRIDE
     Indication: Prophylaxis
     Dosage: UNK
  12. URSODIOL [Concomitant]
     Active Substance: URSODIOL
     Indication: Prophylaxis
     Dosage: UNK
  13. PANCRELIPASE [Concomitant]
     Active Substance: PANCRELIPASE
     Indication: Prophylaxis
     Dosage: UNK
     Dates: start: 20191009
  14. PANCRELIPASE [Concomitant]
     Active Substance: PANCRELIPASE
     Indication: Hypertriglyceridaemia
  15. ENALAPRIL MALEATE [Concomitant]
     Active Substance: ENALAPRIL MALEATE
     Indication: Prophylaxis
     Dosage: UNK

REACTIONS (5)
  - Neoplasm progression [Fatal]
  - Platelet count decreased [Recovered/Resolved]
  - Neutrophil count decreased [Recovered/Resolved]
  - Febrile neutropenia [Recovered/Resolved]
  - Anaemia [Recovered/Resolved]

NARRATIVE: CASE EVENT DATE: 20191012
